FAERS Safety Report 8610827-8 (Version None)
Quarter: 2012Q3

REPORT INFORMATION
  Report Type: 
  Country: None (occurrence: None)
  Receive Date: 20120822
  Receipt Date: 20120813
  Transmission Date: 20120928
  Serious: Yes (Other)
  Sender: FDA-Public Use
  Company Number: US-JNJFOC-20100804649

PATIENT
  Sex: Male

DRUGS (4)
  1. LEVAQUIN [Suspect]
     Indication: SINUSITIS
     Route: 048
     Dates: start: 20040101, end: 20061231
  2. LEVAQUIN [Suspect]
     Indication: INFECTION
     Route: 048
     Dates: start: 20040101, end: 20061231
  3. LEVAQUIN [Suspect]
     Indication: PNEUMONITIS
     Route: 048
     Dates: start: 20040101, end: 20061231
  4. PREDNISONE TAB [Suspect]
     Indication: PRODUCT USED FOR UNKNOWN INDICATION
     Route: 065

REACTIONS (7)
  - MYALGIA [None]
  - DRUG EFFECT DECREASED [None]
  - BONE PAIN [None]
  - DRUG INEFFECTIVE [None]
  - ROTATOR CUFF SYNDROME [None]
  - ARTHRALGIA [None]
  - TENDONITIS [None]
